FAERS Safety Report 12967263 (Version 6)
Quarter: 2016Q4

REPORT INFORMATION
  Report Type: Report from Study
  Country: CN (occurrence: CN)
  Receive Date: 20161123
  Receipt Date: 20161229
  Transmission Date: 20170207
  Serious: Yes (Hospitalization)
  Sender: FDA-Public Use
  Company Number: CN-ROCHE-1856845

PATIENT
  Age: 61 Year
  Sex: Male
  Weight: 52.5 kg

DRUGS (6)
  1. CELECOXIB. [Concomitant]
     Active Substance: CELECOXIB
     Route: 065
     Dates: start: 20160912
  2. ATEZOLIZUMAB [Suspect]
     Active Substance: ATEZOLIZUMAB
     Indication: NON-SMALL CELL LUNG CANCER
     Dosage: DATE OF MOST RECENT DOSE PRIOR TO THE EVENT ONSET: 04/NOV/2016
     Route: 042
     Dates: start: 20160922
  3. BROMINE AMMONIUM [Concomitant]
     Indication: PRODUCTIVE COUGH
     Route: 065
     Dates: start: 20161116
  4. OXYCODONE/PARACETAMOL [Concomitant]
     Active Substance: ACETAMINOPHEN\OXYCODONE HYDROCHLORIDE
     Route: 065
     Dates: start: 20160825
  5. AMBROXOL HYDROCHLORIDE [Concomitant]
     Active Substance: AMBROXOL HYDROCHLORIDE
     Indication: PRODUCTIVE COUGH
     Route: 065
     Dates: start: 20161116
  6. LATAMOXEF SODIUM [Concomitant]
     Route: 065
     Dates: start: 20161116

REACTIONS (2)
  - Cerebral infarction [Not Recovered/Not Resolved]
  - Pneumonia [Not Recovered/Not Resolved]

NARRATIVE: CASE EVENT DATE: 20161116
